FAERS Safety Report 21553276 (Version 1)
Quarter: 2022Q4

REPORT INFORMATION
  Report Type: Report from Study
  Country: US (occurrence: None)
  Receive Date: 20221104
  Receipt Date: 20221104
  Transmission Date: 20230112
  Serious: Yes (Other)
  Sender: FDA-Public Use
  Company Number: 2022A361913

PATIENT
  Sex: Female
  Weight: 61.2 kg

DRUGS (1)
  1. TAGRISSO [Suspect]
     Active Substance: OSIMERTINIB
     Indication: Non-small cell lung cancer
     Route: 048
     Dates: start: 20220927

REACTIONS (3)
  - Hypotension [Unknown]
  - Diarrhoea [Unknown]
  - Urinary tract infection [Unknown]
